FAERS Safety Report 5941775-X (Version None)
Quarter: 2008Q4

REPORT INFORMATION
  Report Type: 
  Country: None (occurrence: None)
  Receive Date: 20081105
  Receipt Date: 20081030
  Transmission Date: 20090506
  Serious: Yes (Other)
  Sender: FDA-Public Use
  Company Number: PHHY2008IT26689

PATIENT
  Sex: Female

DRUGS (3)
  1. FEMARA [Suspect]
     Indication: BREAST CANCER
     Dosage: 2.5 MG/DAY
     Route: 048
     Dates: start: 20050401, end: 20061030
  2. NORVASC [Concomitant]
     Route: 048
  3. TENORETIC 100 [Concomitant]
     Dosage: 62.5 MG/DAY
     Route: 048

REACTIONS (4)
  - AMNESIA [None]
  - ANOREXIA [None]
  - DEPRESSION [None]
  - HEADACHE [None]
